FAERS Safety Report 7633787-5 (Version None)
Quarter: 2011Q3

REPORT INFORMATION
  Report Type: 
  Country: None (occurrence: None)
  Receive Date: 20110725
  Receipt Date: 20110715
  Transmission Date: 20111222
  Serious: Yes (Other)
  Sender: FDA-Public Use
  Company Number: CA-MERCK-1107USA02126

PATIENT
  Age: 92 Year
  Sex: Female

DRUGS (3)
  1. LASIX [Concomitant]
     Route: 065
  2. FOSAMAX [Suspect]
     Route: 048
  3. NORVASC [Concomitant]
     Route: 065

REACTIONS (1)
  - HIP FRACTURE [None]
